FAERS Safety Report 8013225-3 (Version None)
Quarter: 2011Q4

REPORT INFORMATION
  Report Type: 
  Country: None (occurrence: None)
  Receive Date: 20111229
  Receipt Date: 20111229
  Transmission Date: 20120403
  Serious: Yes (Life-Threatening)
  Sender: FDA-Public Use
  Company Number: None

PATIENT
  Sex: Female
  Weight: 67.6 kg

DRUGS (2)
  1. WARFARIN SODIUM [Concomitant]
  2. HUMIRA [Suspect]
     Indication: DERMATOMYOSITIS
     Dosage: HUMIRA
     Route: 058
     Dates: start: 20110301, end: 20110322

REACTIONS (5)
  - BACK PAIN [None]
  - AORTIC ANEURYSM RUPTURE [None]
  - HAEMOTHORAX [None]
  - CHEST PAIN [None]
  - INTERNATIONAL NORMALISED RATIO INCREASED [None]
